FAERS Safety Report 5979153-X (Version None)
Quarter: 2008Q4

REPORT INFORMATION
  Report Type: 
  Country: None (occurrence: None)
  Receive Date: 20081204
  Receipt Date: 20081128
  Transmission Date: 20090506
  Serious: Yes (Other)
  Sender: FDA-Public Use
  Company Number: DE-AMGEN-UK321135

PATIENT
  Sex: Female

DRUGS (3)
  1. ARANESP [Suspect]
     Indication: DRUG USE FOR UNKNOWN INDICATION
     Route: 065
  2. MARCUMAR [Concomitant]
     Route: 065
  3. ANTIHYPERTENSIVE MEDICATION NOS [Concomitant]

REACTIONS (1)
  - APLASIA PURE RED CELL [None]
